FAERS Safety Report 10664609 (Version 1)
Quarter: 2014Q4

REPORT INFORMATION
  Report Type: Spontaneous
  Country: BE (occurrence: BE)
  Receive Date: 20141219
  Receipt Date: 20141219
  Transmission Date: 20150529
  Serious: Yes (Hospitalization)
  Sender: FDA-Public Use
  Company Number: BE-PFIZER INC-2014345469

PATIENT
  Age: 65 Year
  Sex: Male

DRUGS (11)
  1. ZURCALE [Suspect]
     Active Substance: PANTOPRAZOLE SODIUM
     Dosage: 40 MG, 1X/DAY
     Route: 048
  2. PROPANOLOL [Concomitant]
     Active Substance: PROPRANOLOL HYDROCHLORIDE
     Dosage: UNK
  3. ESCITALOPRAM [Concomitant]
     Active Substance: ESCITALOPRAM OXALATE
     Dosage: UNK
  4. FUROSEMIDE. [Concomitant]
     Active Substance: FUROSEMIDE
     Dosage: UNK
  5. DIAZEPAM. [Concomitant]
     Active Substance: DIAZEPAM
     Dosage: UNK
  6. PARACETAMOL [Concomitant]
     Active Substance: ACETAMINOPHEN
     Dosage: UNK
  7. RISPERIDONE. [Concomitant]
     Active Substance: RISPERIDONE
     Dosage: UNK
  8. ALDACTONE [Concomitant]
     Active Substance: SPIRONOLACTONE
     Dosage: UNK
  9. PROTHIPENDYL [Concomitant]
     Active Substance: PROTHIPENDYL
     Dosage: UNK
  10. BEFACT [Concomitant]
     Dosage: UNK
  11. DEHYDROBENZPERIDOL [Concomitant]
     Active Substance: DROPERIDOL
     Dosage: UNK

REACTIONS (7)
  - Agitation [None]
  - Encephalopathy [None]
  - Delirium [Recovered/Resolved]
  - Hallucinations, mixed [None]
  - Confusional state [None]
  - Paranoia [None]
  - Disorientation [None]
